FAERS Safety Report 4896545-0 (Version None)
Quarter: 2006Q1

REPORT INFORMATION
  Report Type: 
  Country: None (occurrence: None)
  Receive Date: 20060126
  Receipt Date: 20051221
  Transmission Date: 20060701
  Serious: Yes (Hospitalization)
  Sender: FDA-Public Use
  Company Number: LUP-0019

PATIENT
  Age: 14 Year
  Sex: Male
  Weight: 64.8644 kg

DRUGS (2)
  1. CEFUROXIME AXETIL [Suspect]
     Indication: OTITIS MEDIA
     Dosage: 500 MG, (250 MG, 2 IN 1 D), ORAL
     Route: 048
     Dates: start: 20051010, end: 20051025
  2. CIPRO-HC (CIPRO HC) (SUSPENSION) [Concomitant]

REACTIONS (3)
  - GASTRITIS [None]
  - LYMPHADENOPATHY [None]
  - PANCREATITIS ACUTE [None]
